FAERS Safety Report 16904283 (Version 5)
Quarter: 2020Q4

REPORT INFORMATION
  Report Type: Spontaneous
  Country: FR (occurrence: FR)
  Receive Date: 20191010
  Receipt Date: 20201013
  Transmission Date: 20210113
  Serious: Yes (Other)
  Sender: FDA-Public Use
  Company Number: FR-GILEAD-2019-0432223

PATIENT
  Age: 44 Year
  Sex: Male
  Weight: 93 kg

DRUGS (6)
  1. BIKTARVY [Suspect]
     Active Substance: BICTEGRAVIR SODIUM\EMTRICITABINE\TENOFOVIR ALAFENAMIDE FUMARATE
     Indication: HIV INFECTION
     Dosage: 1 DOSAGE FORM, QD
     Route: 048
     Dates: start: 20190625, end: 20200629
  2. CLARITHROMYCINE [Concomitant]
     Active Substance: CLARITHROMYCIN
     Indication: MYCOBACTERIUM AVIUM COMPLEX INFECTION
  3. LEDERFOLINE [Concomitant]
     Active Substance: LEUCOVORIN CALCIUM
     Indication: CEREBRAL TOXOPLASMOSIS
  4. MALOCIDE [PYRIMETHAMINE;SULFADOXINE] [Concomitant]
     Indication: CEREBRAL TOXOPLASMOSIS
  5. ETHAMBUTOL [Concomitant]
     Active Substance: ETHAMBUTOL HYDROCHLORIDE
  6. VIMPAT [Concomitant]
     Active Substance: LACOSAMIDE
     Indication: EPILEPSY

REACTIONS (8)
  - Diabetes mellitus [Not Recovered/Not Resolved]
  - Sleep disorder [Unknown]
  - Blood triglycerides increased [Not Recovered/Not Resolved]
  - Weight increased [Recovering/Resolving]
  - Blood cholesterol increased [Unknown]
  - Anxiety [Unknown]
  - Nightmare [Unknown]
  - Increased appetite [Unknown]

NARRATIVE: CASE EVENT DATE: 201909
